FAERS Safety Report 4298944-7 (Version None)
Quarter: 2004Q1

REPORT INFORMATION
  Report Type: 
  Country: None (occurrence: None)
  Receive Date: 20040217
  Receipt Date: 20040212
  Transmission Date: 20041129
  Serious: Yes (Other)
  Sender: FDA-Public Use
  Company Number: THQ2003A01422

PATIENT
  Age: 45 Year
  Sex: Male

DRUGS (4)
  1. LANSOPRAZOLE [Suspect]
     Indication: GASTROOESOPHAGEAL REFLUX DISEASE
     Dosage: SEE IMAGE
     Route: 048
     Dates: start: 20010101, end: 20010801
  2. LANSOPRAZOLE [Suspect]
     Indication: HIATUS HERNIA
     Dosage: SEE IMAGE
     Route: 048
     Dates: start: 20010101, end: 20010801
  3. LANSOPRAZOLE [Suspect]
     Indication: GASTROOESOPHAGEAL REFLUX DISEASE
     Dosage: SEE IMAGE
     Route: 048
     Dates: start: 20010801, end: 20031201
  4. LANSOPRAZOLE [Suspect]
     Indication: HIATUS HERNIA
     Dosage: SEE IMAGE
     Route: 048
     Dates: start: 20010801, end: 20031201

REACTIONS (1)
  - PERIPHERAL SENSORY NEUROPATHY [None]
